FAERS Safety Report 9084841 (Version 1)
Quarter: 2013Q1

REPORT INFORMATION
  Report Type: Report from Study
  Country: FR (occurrence: FR)
  Receive Date: 20130130
  Receipt Date: 20130130
  Transmission Date: 20140127
  Serious: Yes (Hospitalization)
  Sender: FDA-Public Use
  Company Number: PHHO2013FR001627

PATIENT
  Sex: Male
  Weight: 79 kg

DRUGS (12)
  1. GLIVEC [Suspect]
     Indication: GASTROINTESTINAL STROMAL TUMOUR
     Dosage: 400 MG, QD
     Route: 048
     Dates: start: 20100823, end: 20120705
  2. PARACETAMOL [Concomitant]
     Indication: SCIATICA
  3. APROVEL [Concomitant]
     Indication: HYPERTENSION
     Dosage: UNK
  4. INSULATARD [Concomitant]
     Indication: TYPE 1 DIABETES MELLITUS
  5. LANTUS [Concomitant]
     Indication: TYPE 1 DIABETES MELLITUS
  6. DAONIL [Concomitant]
     Indication: TYPE 1 DIABETES MELLITUS
     Dates: start: 20110705
  7. EUPANTOL [Concomitant]
     Indication: PROPHYLAXIS AGAINST GASTROINTESTINAL ULCER
     Dates: start: 201202
  8. NOVORAPID [Concomitant]
     Indication: TYPE 1 DIABETES MELLITUS
  9. LYRICA [Concomitant]
     Indication: NEURALGIA
  10. GAVISCON [Concomitant]
     Indication: PROPHYLAXIS AGAINST GASTROINTESTINAL ULCER
     Dates: start: 201202
  11. OXYCONTIN [Concomitant]
     Indication: PAIN
     Dates: start: 20111109
  12. OXYCODONE [Concomitant]
     Indication: PAIN

REACTIONS (1)
  - Impaired healing [Not Recovered/Not Resolved]
